FAERS Safety Report 17747488 (Version 1)
Quarter: 2020Q2

REPORT INFORMATION
  Report Type: Spontaneous
  Country: FR (occurrence: FR)
  Receive Date: 20200505
  Receipt Date: 20200505
  Transmission Date: 20200714
  Serious: Yes (Hospitalization)
  Sender: FDA-Public Use
  Company Number: FR-AMERICAN REGENT INC-2020000997

PATIENT
  Age: 55 Year
  Sex: Male
  Weight: 80 kg

DRUGS (3)
  1. VENOFER [Suspect]
     Active Substance: IRON SUCROSE
     Indication: ANAEMIA
     Dosage: 20 MILLIGRAM, 1 IN 1 TOTAL
     Route: 042
     Dates: start: 20200408, end: 202004
  2. ROCEPHINE [Suspect]
     Active Substance: CEFTRIAXONE SODIUM
     Indication: SYSTEMIC INFECTION
     Dosage: 2 GRAM, QD
     Route: 042
     Dates: start: 20200407, end: 20200409
  3. FLAGYL [Suspect]
     Active Substance: METRONIDAZOLE\METRONIDAZOLE HYDROCHLORIDE
     Indication: SYSTEMIC INFECTION
     Dosage: 1500 MILLIGRAM, QD
     Route: 048
     Dates: start: 20200407, end: 20200410

REACTIONS (3)
  - Rash [Recovering/Resolving]
  - Eosinophil count increased [Recovered/Resolved]
  - Hepatic enzyme increased [Recovering/Resolving]

NARRATIVE: CASE EVENT DATE: 20200408
